FAERS Safety Report 7001389-X (Version None)
Quarter: 2010Q3

REPORT INFORMATION
  Report Type: 
  Country: None (occurrence: None)
  Receive Date: 20100920
  Receipt Date: 20091207
  Transmission Date: 20110219
  Serious: Yes (Other)
  Sender: FDA-Public Use
  Company Number: US-ASTRAZENECA-2009UW20847

PATIENT
  Age: 17484 Day
  Sex: Female
  Weight: 86.2 kg

DRUGS (6)
  1. SEROQUEL [Suspect]
     Indication: AFFECTIVE DISORDER
     Route: 048
     Dates: start: 20061201, end: 20080301
  2. SEROQUEL [Suspect]
     Indication: DEPRESSION
     Route: 048
     Dates: start: 20061201, end: 20080301
  3. ABILIFY [Concomitant]
     Dates: start: 20071001, end: 20080301
  4. GEODON [Concomitant]
     Dates: start: 20070301, end: 20071201
  5. RISPERDAL [Concomitant]
     Dates: start: 20070201, end: 20070301
  6. ZOLOFT [Concomitant]
     Dates: start: 20061001, end: 20080301

REACTIONS (3)
  - BLOOD CHOLESTEROL INCREASED [None]
  - HYPERLIPIDAEMIA [None]
  - PANCREATITIS ACUTE [None]
